FAERS Safety Report 8156321-2 (Version None)
Quarter: 2012Q1

REPORT INFORMATION
  Report Type: 
  Country: None (occurrence: None)
  Receive Date: 20120222
  Receipt Date: 20110705
  Transmission Date: 20120608
  Serious: Yes (Other)
  Sender: FDA-Public Use
  Company Number: US-BRISTOL-MYERS SQUIBB COMPANY-15875388

PATIENT
  Age: 65 Year
  Sex: Male
  Weight: 91 kg

DRUGS (7)
  1. NEXIUM [Concomitant]
  2. BIOTIN [Concomitant]
  3. EXFORGE HCT [Concomitant]
  4. BYSTOLIC [Concomitant]
  5. DEXLANSOPRAZOLE [Concomitant]
  6. VITAMIN TAB [Concomitant]
     Dosage: (A LOT OF THEM),
  7. KENALOG [Suspect]
     Indication: HYPERSENSITIVITY
     Dosage: LAST INJECTION ON 20JUN2011

REACTIONS (1)
  - CONTUSION [None]
